FAERS Safety Report 5742945-6 (Version None)
Quarter: 2008Q2

REPORT INFORMATION
  Report Type: 
  Country: None (occurrence: None)
  Receive Date: 20080519
  Receipt Date: 20080512
  Transmission Date: 20081010
  Serious: Yes (Other)
  Sender: FDA-Public Use
  Company Number: CN-ASTRAZENECA-2008AP03609

PATIENT
  Age: 60 Year
  Sex: Female

DRUGS (1)
  1. SEROQUEL [Suspect]
     Route: 048
     Dates: start: 20071201

REACTIONS (3)
  - CATARACT [None]
  - VISION BLURRED [None]
  - VITREOUS HAEMORRHAGE [None]
